FAERS Safety Report 8488222-4 (Version None)
Quarter: 2012Q3

REPORT INFORMATION
  Report Type: 
  Country: None (occurrence: None)
  Receive Date: 20120705
  Receipt Date: 20120625
  Transmission Date: 20120928
  Serious: Yes (Hospitalization)
  Sender: FDA-Public Use
  Company Number: US-ASTRAZENECA-2009UW03538

PATIENT
  Age: 71 Year
  Sex: Female
  Weight: 58.1 kg

DRUGS (9)
  1. SINGULAIR [Concomitant]
     Indication: ASTHMA
  2. VITAMIN D [Concomitant]
  3. FLOVENT [Concomitant]
     Indication: HIATUS HERNIA
  4. IRON [Concomitant]
     Indication: ANAEMIA
  5. AXID [Concomitant]
     Indication: HIATUS HERNIA
  6. ARIMIDEX [Suspect]
     Indication: BREAST CANCER STAGE II
     Route: 048
     Dates: start: 20060601
  7. ALBUTEROL [Concomitant]
     Indication: HIATUS HERNIA
  8. ARIMIDEX [Suspect]
     Route: 048
     Dates: start: 20081001
  9. CALCIUM [Concomitant]

REACTIONS (27)
  - PNEUMONIA [None]
  - JOINT STABILISATION [None]
  - FIBROMYALGIA [None]
  - LABYRINTHITIS [None]
  - SPINAL PAIN [None]
  - HOT FLUSH [None]
  - COGNITIVE DISORDER [None]
  - MUSCLE SPASMS [None]
  - THERAPEUTIC RESPONSE UNEXPECTED [None]
  - WITHDRAWAL SYNDROME [None]
  - SOMNOLENCE [None]
  - NAUSEA [None]
  - ARTHRITIS [None]
  - FATIGUE [None]
  - MENTAL IMPAIRMENT [None]
  - DRUG DOSE OMISSION [None]
  - AMNESIA [None]
  - DEPRESSION [None]
  - ABASIA [None]
  - CYSTITIS [None]
  - INTENTIONAL DRUG MISUSE [None]
  - BONE PAIN [None]
  - ARTHRALGIA [None]
  - COMPRESSION FRACTURE [None]
  - DISTURBANCE IN ATTENTION [None]
  - LACRIMAL GLAND ENLARGEMENT [None]
  - OSTEOPOROSIS [None]
